FAERS Safety Report 17556564 (Version 1)
Quarter: 2020Q1

REPORT INFORMATION
  Report Type: Spontaneous
  Country: FR (occurrence: FR)
  Receive Date: 20200318
  Receipt Date: 20200318
  Transmission Date: 20200409
  Serious: Yes (Life-Threatening, Hospitalization, Other)
  Sender: FDA-Public Use
  Company Number: FR-PFIZER INC-2020099627

PATIENT
  Age: 70 Year
  Sex: Male

DRUGS (4)
  1. CHLORMEZANONE [Suspect]
     Active Substance: CHLORMEZANONE
     Indication: SCIATICA
     Dosage: UNK
     Dates: start: 199402, end: 19940228
  2. FLOCTAFENINE [Suspect]
     Active Substance: FLOCTAFENINE
     Indication: SCIATICA
     Dosage: UNK
     Dates: start: 199402, end: 19940228
  3. TENOXICAM [Suspect]
     Active Substance: TENOXICAM
     Indication: SCIATICA
     Dosage: UNK
     Dates: start: 199402, end: 19940228
  4. METHOTREXATE SODIUM. [Suspect]
     Active Substance: METHOTREXATE SODIUM
     Indication: RHEUMATOID ARTHRITIS
     Dosage: 7.5 MG, WEEKLY
     Dates: start: 1991, end: 19940228

REACTIONS (5)
  - Pancytopenia [Unknown]
  - Bicytopenia [Recovered/Resolved]
  - Stomatitis [Unknown]
  - Rash erythematous [Recovering/Resolving]
  - Malaise [Unknown]

NARRATIVE: CASE EVENT DATE: 199402
